FAERS Safety Report 4852372-1 (Version None)
Quarter: 2005Q4

REPORT INFORMATION
  Report Type: 
  Country: None (occurrence: None)
  Receive Date: 20051213
  Receipt Date: 20051202
  Transmission Date: 20060501
  Serious: Yes (Death)
  Sender: FDA-Public Use
  Company Number: JP-JNJFOC-20051003752

PATIENT
  Age: 64 Year
  Sex: Male

DRUGS (3)
  1. DUROTEP [Suspect]
     Route: 062
  2. DUROTEP [Suspect]
     Route: 062
  3. DUROTEP [Suspect]
     Indication: CANCER PAIN
     Route: 062

REACTIONS (4)
  - CONFUSIONAL STATE [None]
  - HALLUCINATION [None]
  - PANCREATIC CARCINOMA [None]
  - PNEUMONIA [None]
